FAERS Safety Report 19495486 (Version 1)
Quarter: 2021Q3

REPORT INFORMATION
  Report Type: Other
  Country: CN (occurrence: CN)
  Receive Date: 20210706
  Receipt Date: 20210706
  Transmission Date: 20211014
  Serious: Yes (Other)
  Sender: FDA-Public Use
  Company Number: CN-ROCHE-2859283

PATIENT

DRUGS (3)
  1. TRASTUZUMAB. [Suspect]
     Active Substance: TRASTUZUMAB
     Indication: GASTRIC CANCER
     Route: 041
  2. TEGAFUR GIMERACIL AND OTERACIL POTASSIUM [Suspect]
     Active Substance: GIMERACIL\OTERACIL\TEGAFUR
     Indication: GASTRIC CANCER
     Dosage: AFTER 14 CONSECUTIVE DAYS OF TREATMENT, REST 7 DAYS, EVERY 21 DAYS IS A CYCLE. A TOTAL OF 8 CYCLES.
     Route: 065
  3. TRASTUZUMAB. [Suspect]
     Active Substance: TRASTUZUMAB
     Dosage: EVERY 21 DAYS WAS A CYCLE
     Route: 041

REACTIONS (3)
  - Neutrophil count decreased [Unknown]
  - Blood disorder [Unknown]
  - Adverse event [Unknown]
